FAERS Safety Report 4962411-5 (Version None)
Quarter: 2006Q1

REPORT INFORMATION
  Report Type: 
  Country: None (occurrence: None)
  Receive Date: 20060329
  Receipt Date: 20060320
  Transmission Date: 20060701
  Serious: Yes (Hospitalization)
  Sender: FDA-Public Use
  Company Number: ZICO001221

PATIENT
  Age: 48 Year
  Sex: Female

DRUGS (12)
  1. PRIALT(ZICONOTIDE INTRATHECAL INFUSION) SOLUTION [Suspect]
     Indication: BACK PAIN
     Dosage: 0.1 MCG/HR, INTRATHECAL
     Route: 037
     Dates: start: 20050429
  2. ZANAFLEX [Suspect]
  3. NEURONTIN [Concomitant]
  4. RESTORIL [Concomitant]
  5. WELLBUTRIN [Concomitant]
  6. DILAUDID [Concomitant]
  7. OXYBUTRYN (OXYBUTRYN) [Concomitant]
  8. PROTONIX [Concomitant]
  9. ZOLOFT [Concomitant]
  10. PROCRIT [Concomitant]
  11. HYDROCHLOROTHIAZIDE [Concomitant]
  12. LEVAQUIN [Concomitant]

REACTIONS (13)
  - ANAEMIA [None]
  - ANXIETY [None]
  - BLOOD ALBUMIN DECREASED [None]
  - BLOOD CALCIUM DECREASED [None]
  - BLOOD CREATINE PHOSPHOKINASE INCREASED [None]
  - BLOOD CREATINE PHOSPHOKINASE MB INCREASED [None]
  - DYSPNOEA [None]
  - HAEMATOCRIT DECREASED [None]
  - HEADACHE [None]
  - LYMPHOCYTE PERCENTAGE DECREASED [None]
  - NEUTROPHIL PERCENTAGE INCREASED [None]
  - PLATELET COUNT INCREASED [None]
  - PULMONARY OEDEMA [None]
